FAERS Safety Report 19171772 (Version 2)
Quarter: 2021Q2

REPORT INFORMATION
  Report Type: Spontaneous
  Country: SE (occurrence: SE)
  Receive Date: 20210423
  Receipt Date: 20210501
  Transmission Date: 20210717
  Serious: Yes (Death)
  Sender: FDA-Public Use
  Company Number: SE-TEVA-2021-SE-1903041

PATIENT
  Age: 76 Year
  Sex: Male
  Weight: 80 kg

DRUGS (17)
  1. BISOPROLOL SANDOZ 2,5 MG FILMDRAGERAD TABLETT [Concomitant]
     Dosage: 5 MG
     Route: 048
     Dates: start: 20200313
  2. ONDANSETRON AUROBINDO 8 MG FILMDRAGERAD TABLETT [Concomitant]
     Dosage: 8 MILLIGRAM DAILY;   IN THE MORNING ,DAY 1 OF CHEMOTHERAPY
     Route: 048
     Dates: start: 20210127
  3. GEMCITABINE. [Suspect]
     Active Substance: GEMCITABINE
     Indication: PANCREATIC CARCINOMA METASTATIC
     Dosage: 1824 MG, UNIT DOSE :1000 MG/M2
     Route: 042
     Dates: start: 20210303
  4. ESOMEPRAZOL KRKA 40 MG ENTEROKAPSEL, HARD [Concomitant]
     Dosage: 40 MG , ENTERO CAPSULE, HARD
     Route: 048
     Dates: start: 20200520
  5. GEMCITABINE. [Suspect]
     Active Substance: GEMCITABINE
     Dosage: 1824 MG, UNIT DOSE :1000 MG/M2
     Route: 042
     Dates: start: 20210310
  6. COMIRNATY [Suspect]
     Active Substance: TOZINAMERAN
     Dosage: DOS 2
     Dates: start: 20210304
  7. COMIRNATY [Suspect]
     Active Substance: TOZINAMERAN
     Dosage: DOS 1
     Dates: start: 20210205
  8. GEMCITABINE. [Suspect]
     Active Substance: GEMCITABINE
     Dosage: 1824 MG, UNIT DOSE :1000 MG/M2
     Route: 042
     Dates: start: 20210217
  9. STESOLID 5 MG TABLETT [Concomitant]
     Active Substance: DIAZEPAM
     Dosage: UNIT DOSE :5 MG , IF NEEDED FOR THE NIGHT
     Route: 048
     Dates: start: 20210127
  10. ALLOPURINOL NORDIC DRUGS 100 MG TABLETT [Concomitant]
     Active Substance: ALLOPURINOL
     Dosage: 100 MG
     Route: 048
     Dates: start: 20200506
  11. SERTRALIN HEXAL 100 MG FILMDRAGERAD TABLETT [Concomitant]
     Dosage: 100 MG
     Route: 048
     Dates: start: 20200522
  12. INSUMAN BASAL SOLOSTAR 100 IE/ML INJEKTIONSVATSKA, SUSPENSION I FORFYL [Concomitant]
     Dosage: 0+28+0+8
     Route: 058
     Dates: start: 20200506
  13. FURIX 40 MG TABLETT [Concomitant]
     Dosage: 40 MG
     Route: 048
     Dates: start: 20200522
  14. ACETYLSALICYLSYRA TEVA 75 MG TABLETT [Concomitant]
     Dosage: 75 MG
     Route: 048
     Dates: start: 20200522
  15. GEMCITABINE. [Suspect]
     Active Substance: GEMCITABINE
     Dosage: 1824 MG, UNIT DOSE :1000 MG/M2
     Route: 042
     Dates: start: 20210203
  16. ATORBIR 40 MG FILMDRAGERAD TABLETT [Concomitant]
     Dosage: 40 MG
     Route: 048
     Dates: start: 20200522
  17. BETAMETASON ALTERNOVA 0,5 MG TABLETT [Concomitant]
     Dosage: UNIT DOSE :4MG ,8 TABLETS ON DAY 1 OF CYSTOSTATIC TREATMENT
     Route: 048
     Dates: start: 20210127

REACTIONS (1)
  - Thrombocytopenia [Fatal]

NARRATIVE: CASE EVENT DATE: 202103
